FAERS Safety Report 6535459-7 (Version None)
Quarter: 2010Q1

REPORT INFORMATION
  Report Type: 
  Country: None (occurrence: None)
  Receive Date: 20100111
  Receipt Date: 20100111
  Transmission Date: 20100710
  Serious: No
  Sender: FDA-Public Use
  Company Number: None

PATIENT
  Age: 47 Year
  Sex: Male
  Weight: 92.9874 kg

DRUGS (2)
  1. ULTRAM [Suspect]
     Indication: SCIATICA
     Dosage: 50MG 100MG EVERY 4 HRS ORAL
     Route: 048
  2. GEBHARDIA [Suspect]
     Indication: INTERVERTEBRAL DISC DEGENERATION
     Dosage: 300 MG 3X A DAY ORAL
     Route: 048

REACTIONS (5)
  - ANGIOEDEMA [None]
  - DYSPNOEA [None]
  - HYPERSENSITIVITY [None]
  - PENIS DISORDER [None]
  - URTICARIA [None]
